FAERS Safety Report 19643975 (Version 2)
Quarter: 2021Q4

REPORT INFORMATION
  Report Type: Report from Study
  Country: US (occurrence: US)
  Receive Date: 20210731
  Receipt Date: 20211018
  Transmission Date: 20220303
  Serious: No
  Sender: FDA-Public Use
  Company Number: NVSC2021US165927

PATIENT
  Sex: Female

DRUGS (1)
  1. COSENTYX [Suspect]
     Active Substance: SECUKINUMAB
     Indication: Psoriatic arthropathy
     Dosage: 150 MG, QW
     Route: 058

REACTIONS (8)
  - Psoriasis [Unknown]
  - Nausea [Unknown]
  - Dehydration [Unknown]
  - Flatulence [Unknown]
  - Abdominal discomfort [Unknown]
  - Constipation [Unknown]
  - Discomfort [Unknown]
  - Pain [Unknown]
